FAERS Safety Report 12542185 (Version 1)
Quarter: 2016Q3

REPORT INFORMATION
  Report Type: Spontaneous
  Country: US (occurrence: US)
  Receive Date: 20160708
  Receipt Date: 20160708
  Transmission Date: 20161109
  Serious: Yes (Hospitalization, Other)
  Sender: FDA-Public Use
  Company Number: US-SAOL THERAPEUTICS-2016SAO00106

PATIENT
  Sex: Male

DRUGS (2)
  1. SUFENTANIL [Suspect]
     Active Substance: SUFENTANIL
     Dosage: UNK
  2. BACLOFEN. [Suspect]
     Active Substance: BACLOFEN
     Indication: PAIN
     Dosage: UNK

REACTIONS (4)
  - Spinal cord operation [Unknown]
  - Device issue [Recovered/Resolved]
  - Drug withdrawal syndrome [Recovered/Resolved]
  - Limb injury [Not Recovered/Not Resolved]

NARRATIVE: CASE EVENT DATE: 201606
